FAERS Safety Report 7209809-2 (Version None)
Quarter: 2011Q1

REPORT INFORMATION
  Report Type: 
  Country: None (occurrence: None)
  Receive Date: 20110104
  Receipt Date: 20101229
  Transmission Date: 20110831
  Serious: Yes (Hospitalization)
  Sender: FDA-Public Use
  Company Number: JP-MERCK-1012USA04370

PATIENT
  Age: 23 Year
  Sex: Male

DRUGS (1)
  1. HYDROCORTONE [Suspect]
     Indication: PROPHYLAXIS AGAINST GASTROINTESTINAL ULCER
     Route: 048
     Dates: start: 20080101

REACTIONS (2)
  - PORTAL VENOUS GAS [None]
  - GASTRITIS BACTERIAL [None]
